FAERS Safety Report 11009256 (Version 6)
Quarter: 2015Q3

REPORT INFORMATION
  Report Type: Spontaneous
  Country: US (occurrence: US)
  Receive Date: 20150410
  Receipt Date: 20150922
  Transmission Date: 20151125
  Serious: Yes (Other)
  Sender: FDA-Public Use
  Company Number: US-PFIZER INC-2015117602

PATIENT
  Age: 73 Year
  Sex: Female
  Weight: 99 kg

DRUGS (14)
  1. CIPROFLOXACIN HCL [Concomitant]
     Active Substance: CIPROFLOXACIN HYDROCHLORIDE
     Dosage: 500 MG, 2X/DAY (TAKE 1 TABLET ORAL B.I.D. FOR 10 DAYS)
     Route: 048
     Dates: start: 20131107, end: 20131117
  2. SPIRONOLACTONE-HCTZ [Concomitant]
     Active Substance: HYDROCHLOROTHIAZIDE\SPIRONOLACTONE
     Dosage: UNK (1-2 25-25 MG)
     Route: 048
     Dates: start: 2014, end: 20140731
  3. SUTENT [Suspect]
     Active Substance: SUNITINIB MALATE
     Dosage: 12.5 MG, 3X/DAY (TOTAL DOSE OF 37.5 MG FOR 28 DAYS, THEN NONE FOR 14 EVERY 42 DAYS)
     Route: 048
     Dates: start: 201109
  4. ACYCLOVIR. [Concomitant]
     Active Substance: ACYCLOVIR
     Dosage: 400 MG, 2X/DAY
     Route: 048
     Dates: start: 2011
  5. ALDACTONE [Concomitant]
     Active Substance: SPIRONOLACTONE
     Dosage: UNK
  6. TENORMIN [Concomitant]
     Active Substance: ATENOLOL
     Dosage: UNK UNK, DAILY
     Route: 048
     Dates: start: 20120120
  7. ACYCLOVIR. [Concomitant]
     Active Substance: ACYCLOVIR
     Dosage: UNK
     Route: 048
     Dates: start: 20120120
  8. ALEVE [Concomitant]
     Active Substance: NAPROXEN SODIUM
     Dosage: 220 MG, AS NEEDED
     Route: 048
     Dates: start: 2014
  9. HYDROCHLOROTHIAZIDE. [Concomitant]
     Active Substance: HYDROCHLOROTHIAZIDE
  10. SUTENT [Suspect]
     Active Substance: SUNITINIB MALATE
     Indication: METASTATIC RENAL CELL CARCINOMA
     Dosage: (37.5 MG 28 DAYS ON/14 DAYS OFF)
     Dates: start: 20110324
  11. LEVOTHYROXINE. [Concomitant]
     Active Substance: LEVOTHYROXINE
     Dosage: 0.075 MG, DAILY
     Route: 048
     Dates: start: 2013
  12. FISH OIL [Concomitant]
     Active Substance: FISH OIL
     Dosage: UNK
     Route: 048
     Dates: end: 20140213
  13. IRON [Concomitant]
     Active Substance: IRON
     Dosage: 29 MG, DAILY
     Route: 048
     Dates: end: 20111013
  14. SPIRONOLACTONE W/HYDROCHLOROTHIAZIDE [Concomitant]
     Active Substance: HYDROCHLOROTHIAZIDE\SPIRONOLACTONE
     Dosage: UNK

REACTIONS (18)
  - Faeces soft [Unknown]
  - Muscle spasms [Recovered/Resolved]
  - Oedema peripheral [Recovered/Resolved]
  - Hypertension [Recovered/Resolved]
  - Hypersensitivity [Unknown]
  - Weight decreased [Unknown]
  - Blood thyroid stimulating hormone abnormal [Unknown]
  - Hair colour changes [Unknown]
  - Ulcer [Recovered/Resolved]
  - Bone pain [Unknown]
  - Adrenal adenoma [Unknown]
  - Pain in extremity [Unknown]
  - Fatigue [Recovering/Resolving]
  - Rhinorrhoea [Unknown]
  - Weight increased [Unknown]
  - Fluid retention [Unknown]
  - Oral pain [Unknown]
  - Pain [Unknown]

NARRATIVE: CASE EVENT DATE: 20150224
